FAERS Safety Report 9434020 (Version 2)
Quarter: 2013Q4

REPORT INFORMATION
  Report Type: Spontaneous
  Country: US (occurrence: US)
  Receive Date: 20130801
  Receipt Date: 20131011
  Transmission Date: 20140711
  Serious: Yes (Other)
  Sender: FDA-Public Use
  Company Number: US-AMGEN-USASP2013052869

PATIENT
  Age: 30 Year
  Sex: Female
  Weight: 58.96 kg

DRUGS (6)
  1. ENBREL [Suspect]
     Indication: RHEUMATOID ARTHRITIS
     Dosage: 50 MG, QWK
     Route: 065
     Dates: start: 20130422
  2. CALCIUM [Concomitant]
     Dosage: UNK UNK, QD
  3. CHONDROITIN W/GLUCOSAMINE          /02118501/ [Concomitant]
     Dosage: UNK UNK, QD
  4. VITAMIN C                          /00008001/ [Concomitant]
     Dosage: UNK UNK, QD
  5. FISH OIL OMEGA 3 [Concomitant]
     Dosage: UNK UNK, QD
  6. MSM [Concomitant]
     Dosage: UNK UNK, QD

REACTIONS (1)
  - Abortion spontaneous [Recovered/Resolved]
